FAERS Safety Report 17013677 (Version 1)
Quarter: 2019Q4

REPORT INFORMATION
  Report Type: Report from Study
  Country: US (occurrence: US)
  Receive Date: 20191110
  Receipt Date: 20191110
  Transmission Date: 20200122
  Serious: Yes (Hospitalization, Other)
  Sender: FDA-Public Use
  Company Number: US-BIOGEN-2019BI00802714

PATIENT
  Sex: Female

DRUGS (1)
  1. TECFIDERA [Suspect]
     Active Substance: DIMETHYL FUMARATE
     Indication: MULTIPLE SCLEROSIS
     Dosage: MAINTENANCE DOSE
     Route: 048
     Dates: start: 20181011

REACTIONS (9)
  - Decreased appetite [Unknown]
  - Urinary tract infection [Unknown]
  - Large intestinal ulcer haemorrhage [Unknown]
  - Feeding disorder [Unknown]
  - Dehydration [Unknown]
  - Oesophageal disorder [Unknown]
  - Multiple sclerosis [Not Recovered/Not Resolved]
  - Peripheral swelling [Not Recovered/Not Resolved]
  - Dysphagia [Unknown]
